FAERS Safety Report 10093771 (Version 1)
Quarter: 2014Q2

REPORT INFORMATION
  Report Type: Spontaneous
  Country: US (occurrence: US)
  Receive Date: 20140421
  Receipt Date: 20140421
  Transmission Date: 20141212
  Serious: No
  Sender: FDA-Public Use
  Company Number: US-SA-2014SA024164

PATIENT
  Sex: Male

DRUGS (1)
  1. ALLEGRA [Suspect]
     Dosage: THERAPY STARTED 1-2 DAYS AGO
     Route: 048

REACTIONS (5)
  - Dizziness [Unknown]
  - Vertigo [Unknown]
  - Feeling abnormal [Unknown]
  - Balance disorder [Unknown]
  - Underdose [Unknown]
